FAERS Safety Report 8776471 (Version 3)
Quarter: 2012Q4

REPORT INFORMATION
  Report Type: 
  Country: AU (occurrence: AU)
  Receive Date: 20120910
  Receipt Date: 20121008
  Transmission Date: 20130627
  Serious: Yes (Other)
  Sender: FDA-Public Use
  Company Number: PHHY2012AU077997

PATIENT
  Age: 25 Year
  Sex: Male

DRUGS (6)
  1. CLOZARIL [Suspect]
     Indication: SCHIZOPHRENIA
     Dosage: UNK UKN, UNK
     Route: 048
     Dates: start: 20120706, end: 20120807
  2. CLOZARIL [Suspect]
     Dosage: 12.5 - 300 mg
     Dates: start: 20120718, end: 20120807
  3. CITALOPRAM [Concomitant]
     Indication: DEPRESSION
     Dosage: 20 mg, mane
     Route: 048
  4. BENZATROPINE [Concomitant]
     Indication: EXTRAPYRAMIDAL DISORDER
     Dosage: 1 mg, BID
     Route: 048
  5. RISPERIDONE [Concomitant]
     Indication: SCHIZOPHRENIA
     Dosage: 4 mg, nocte
     Route: 048
  6. SEROQUEL XR [Concomitant]

REACTIONS (3)
  - Myocarditis [Recovered/Resolved]
  - Pyrexia [Recovered/Resolved]
  - Echocardiogram abnormal [Recovered/Resolved]
